FAERS Safety Report 6398798-9 (Version None)
Quarter: 2009Q4

REPORT INFORMATION
  Report Type: 
  Country: None (occurrence: None)
  Receive Date: 20091013
  Receipt Date: 20091002
  Transmission Date: 20100525
  Serious: Yes (Hospitalization)
  Sender: FDA-Public Use
  Company Number: ZA-SANOFI-SYNTHELABO-A01200910249

PATIENT
  Sex: Female

DRUGS (2)
  1. STILNOX MR [Suspect]
     Indication: DRUG USE FOR UNKNOWN INDICATION
     Dosage: UNK
     Route: 048
     Dates: end: 20090801
  2. ANTIDEPRESSANTS [Concomitant]
     Dosage: UNK
     Route: 065

REACTIONS (1)
  - MYOCLONUS [None]
